FAERS Safety Report 7372138-0 (Version None)
Quarter: 2011Q1

REPORT INFORMATION
  Report Type: 
  Country: None (occurrence: None)
  Receive Date: 20110324
  Receipt Date: 20110318
  Transmission Date: 20110831
  Serious: Yes (Disabling, Other)
  Sender: FDA-Public Use
  Company Number: US-BAXTER-2011BH003817

PATIENT
  Age: 76 Year
  Sex: Male
  Weight: 69 kg

DRUGS (13)
  1. ASCORBIC ACID [Concomitant]
  2. ARIPIPRAZOLE [Concomitant]
  3. VIAGRA [Concomitant]
  4. RAMIPRIL [Concomitant]
  5. GAMMAGARD LIQUID [Suspect]
     Indication: DEMENTIA ALZHEIMER'S TYPE
     Route: 042
     Dates: start: 20061009, end: 20101101
  6. MULTI-VITAMINS [Concomitant]
  7. SERTRALINE HYDROCHLORIDE [Concomitant]
  8. NAMENDA [Concomitant]
  9. ASPIRIN [Concomitant]
  10. ATORVASTATIN CALCIUM [Concomitant]
  11. GALANTAMINE HYDROBROMIDE [Concomitant]
  12. ZETIA [Concomitant]
  13. GAMMAGARD LIQUID [Suspect]
     Route: 042
     Dates: start: 20101115, end: 20101115

REACTIONS (1)
  - NORMAL PRESSURE HYDROCEPHALUS [None]
